FAERS Safety Report 18955402 (Version 1)
Quarter: 2021Q1

REPORT INFORMATION
  Report Type: Spontaneous
  Country: US (occurrence: US)
  Receive Date: 20210301
  Receipt Date: 20210301
  Transmission Date: 20210420
  Serious: Yes (Hospitalization, Other)
  Sender: FDA-Public Use
  Company Number: US-PFIZER INC-2021199744

PATIENT
  Age: 79 Year
  Sex: Female
  Weight: 72.56 kg

DRUGS (2)
  1. EFFEXOR XR [Suspect]
     Active Substance: VENLAFAXINE HYDROCHLORIDE
     Indication: BACK PAIN
  2. EFFEXOR XR [Suspect]
     Active Substance: VENLAFAXINE HYDROCHLORIDE
     Indication: BIPOLAR DISORDER
     Dosage: 225 MG, 1X/DAY (150MG AND 75MG CAPSULE, DAILY, ONCE A DAY

REACTIONS (4)
  - Off label use [Unknown]
  - Fall [Unknown]
  - Movement disorder [Unknown]
  - Dementia [Unknown]

NARRATIVE: CASE EVENT DATE: 20201231
